FAERS Safety Report 5818272-5 (Version None)
Quarter: 2008Q3

REPORT INFORMATION
  Report Type: 
  Country: None (occurrence: None)
  Receive Date: 20080722
  Receipt Date: 20080710
  Transmission Date: 20090109
  Serious: Yes (Other)
  Sender: FDA-Public Use
  Company Number: US-PFIZER INC-2008042365

PATIENT
  Sex: Female

DRUGS (11)
  1. NEURONTIN [Suspect]
  2. LYRICA [Suspect]
  3. DARVOCET [Concomitant]
  4. LEVOTHYROXINE SODIUM [Concomitant]
  5. LEVSIN [Concomitant]
     Indication: ABDOMINAL PAIN UPPER
  6. ALL OTHER THERAPEUTIC PRODUCTS [Concomitant]
     Indication: ANXIETY
  7. ACETYLSALICYLIC ACID SRT [Concomitant]
     Dosage: DAILY DOSE:80MG
  8. BECOSYM FORTE [Concomitant]
     Dosage: FREQ:DAILY
  9. VITAMIN D [Concomitant]
     Dosage: FREQ:DAILY
  10. LISINOPRIL AND HYDROCHLOROTHIAZIDE [Concomitant]
  11. BENICAR HCT [Concomitant]
     Indication: BLOOD PRESSURE

REACTIONS (26)
  - ABDOMINAL PAIN [None]
  - ASTHENIA [None]
  - BODY HEIGHT DECREASED [None]
  - BURNING SENSATION [None]
  - DEMYELINATING POLYNEUROPATHY [None]
  - DIPLOPIA [None]
  - DIZZINESS [None]
  - DRY EYE [None]
  - DRY MOUTH [None]
  - EAR PAIN [None]
  - FEELING HOT [None]
  - GASTROINTESTINAL PAIN [None]
  - HEADACHE [None]
  - MALAISE [None]
  - MUSCLE DISORDER [None]
  - MYALGIA [None]
  - NAUSEA [None]
  - OEDEMA PERIPHERAL [None]
  - PAIN [None]
  - PRURITUS [None]
  - RASH [None]
  - RHINORRHOEA [None]
  - WALKING AID USER [None]
  - WEIGHT DECREASED [None]
  - WEIGHT INCREASED [None]
  - WITHDRAWAL SYNDROME [None]
